FAERS Safety Report 5137591-1 (Version None)
Quarter: 2006Q4

REPORT INFORMATION
  Report Type: 
  Country: None (occurrence: None)
  Receive Date: 20061030
  Receipt Date: 20051122
  Transmission Date: 20070319
  Serious: No
  Sender: FDA-Public Use
  Company Number: S2005US15076

PATIENT

DRUGS (2)
  1. ADVAIR HFA [Suspect]
     Indication: ASTHMA
     Route: 055
  2. SINGULAIR [Suspect]
     Indication: ASTHMA
     Route: 065

REACTIONS (1)
  - DRUG INEFFECTIVE [None]
